FAERS Safety Report 12188688 (Version 1)
Quarter: 2016Q1

REPORT INFORMATION
  Report Type: Spontaneous
  Country: CN (occurrence: CN)
  Receive Date: 20160317
  Receipt Date: 20160317
  Transmission Date: 20160526
  Serious: Yes (Hospitalization)
  Sender: FDA-Public Use
  Company Number: CN-WATSON-2016-05748

PATIENT
  Age: 30 Year
  Sex: Male

DRUGS (13)
  1. JIA LUO TAN [Concomitant]
     Indication: MUSCULOSKELETAL STIFFNESS
     Dosage: 3.75 G, UNK
     Route: 042
  2. ACYCLOVIR                          /00587301/ [Concomitant]
     Active Substance: ACYCLOVIR
     Indication: MUSCULOSKELETAL STIFFNESS
  3. GANCICLOVIR. [Concomitant]
     Active Substance: GANCICLOVIR
     Indication: CENTRAL NERVOUS SYSTEM INFLAMMATION
     Dosage: 750 MG, DAILY
     Route: 042
  4. RIBAVIRIN. [Concomitant]
     Active Substance: RIBAVIRIN
     Indication: MUSCULOSKELETAL STIFFNESS
     Dosage: 0.3 G, BID
     Route: 065
  5. RIBAVIRIN. [Concomitant]
     Active Substance: RIBAVIRIN
     Indication: HEADACHE
  6. PREDNISONE (UNKNOWN) [Suspect]
     Active Substance: PREDNISONE
     Dosage: 10 MG WEEKLY
     Route: 048
  7. POLYMYXIN B. [Concomitant]
     Active Substance: POLYMYXIN B
     Indication: MUSCULOSKELETAL STIFFNESS
  8. PREDNISONE (UNKNOWN) [Suspect]
     Active Substance: PREDNISONE
     Indication: CENTRAL NERVOUS SYSTEM INFLAMMATION
     Dosage: 40 MG, DAILY, GRADUALLY TAPERED BY 10 MG WEEKLY
     Route: 048
  9. ACYCLOVIR                          /00587301/ [Concomitant]
     Active Substance: ACYCLOVIR
     Indication: HEADACHE
     Dosage: EVERY 4 H
     Route: 065
  10. DEXAMETHASONE (UNKNOWN) [Suspect]
     Active Substance: DEXAMETHASONE
     Indication: CENTRAL NERVOUS SYSTEM INFLAMMATION
     Dosage: 20 MG, DAILY
     Route: 065
  11. DEXAMETHASONE (UNKNOWN) [Suspect]
     Active Substance: DEXAMETHASONE
     Dosage: 10 MG, DAILY
     Route: 065
  12. POLYMYXIN B. [Concomitant]
     Active Substance: POLYMYXIN B
     Indication: HEADACHE
     Dosage: 1 G, TID, OINTMENT
     Route: 061
  13. JIA LUO TAN [Concomitant]
     Indication: HEADACHE

REACTIONS (1)
  - Tuberculosis [Recovered/Resolved]
